FAERS Safety Report 24838115 (Version 3)
Quarter: 2025Q4

REPORT INFORMATION
  Report Type: Spontaneous
  Country: EU (occurrence: EU)
  Receive Date: 20250113
  Receipt Date: 20251120
  Transmission Date: 20260118
  Serious: Yes (Hospitalization)
  Sender: PFIZER
  Company Number: EU-ROCHE-10000168328

PATIENT
  Age: 63 Year
  Sex: Male

DRUGS (4)
  1. BEVACIZUMAB [Suspect]
     Active Substance: BEVACIZUMAB
     Indication: Metastases to lymph nodes
     Dosage: 1250 MG, EVERY 3 WEEKS
     Route: 042
     Dates: start: 20240119
  2. BEVACIZUMAB [Suspect]
     Active Substance: BEVACIZUMAB
     Dosage: 1250 MG, EVERY 3 WEEKS (ON 06-DEC-2024, RECEIVED MOST RECENT DOSE OF BEVACIZUMAB PRIOR TO AE)
     Route: 042
     Dates: start: 20241206
  3. ATEZOLIZUMAB [Suspect]
     Active Substance: ATEZOLIZUMAB
     Indication: Metastases to lymph nodes
     Dosage: 1200 MG, EVERY 3 WEEKS
     Route: 042
     Dates: start: 20240119
  4. ATEZOLIZUMAB [Suspect]
     Active Substance: ATEZOLIZUMAB
     Dosage: 1200 MG, EVERY 3 WEEKS (ON 06-DEC-2024, RECEIVED MOST RECENT DOSE OF ATEZOLIZUMAB PRIOR TO AE)
     Route: 042
     Dates: start: 20241206

REACTIONS (2)
  - Nephritis [Recovered/Resolved]
  - Off label use [Unknown]

NARRATIVE: CASE EVENT DATE: 20240119
